FAERS Safety Report 12792072 (Version 1)
Quarter: 2016Q3

REPORT INFORMATION
  Report Type: Spontaneous
  Country: US (occurrence: US)
  Receive Date: 20160929
  Receipt Date: 20160929
  Transmission Date: 20161109
  Serious: Yes (Hospitalization)
  Sender: FDA-Public Use
  Company Number: None

PATIENT
  Age: 60 Year
  Sex: Female
  Weight: 75.93 kg

DRUGS (2)
  1. PALBOCICLIB [Suspect]
     Active Substance: PALBOCICLIB
     Indication: SQUAMOUS CELL CARCINOMA OF HEAD AND NECK
     Dosage: 125 MG QD DAYS 1-21 PO
     Route: 048
     Dates: start: 20160824, end: 20160913
  2. CETUXIMAB [Suspect]
     Active Substance: CETUXIMAB
     Indication: SQUAMOUS CELL CARCINOMA OF HEAD AND NECK
     Route: 042
     Dates: start: 20160824, end: 20160914

REACTIONS (10)
  - Confusional state [None]
  - Pneumonia [None]
  - Urinary retention [None]
  - Somnolence [None]
  - Back pain [None]
  - Mental status changes [None]
  - Agitation [None]
  - Neutrophilia [None]
  - Lethargy [None]
  - Urine ketone body present [None]

NARRATIVE: CASE EVENT DATE: 20160926
